FAERS Safety Report 10065607 (Version 1)
Quarter: 2014Q2

REPORT INFORMATION
  Report Type: Spontaneous
  Country: US (occurrence: None)
  Receive Date: 20140401
  Receipt Date: 20140401
  Transmission Date: 20141212
  Serious: Yes (Hospitalization)
  Sender: FDA-Public Use
  Company Number: PHEH2013US018036

PATIENT
  Age: 87 Year
  Sex: Female

DRUGS (6)
  1. EXELON PATCH (RIVASTIGMINE) TRANS-THERAPEUTIC-SYSTEM [Suspect]
     Indication: DEMENTIA ALZHEIMER^S TYPE
     Route: 062
  2. AMLODIPINE (AMLODIPINE) [Concomitant]
  3. LISINOPRIL (LISINOPRIL) [Concomitant]
  4. METOPROLOL (METOPROLOL) [Concomitant]
  5. PRAVASTATIN (PRAVASTATIN) [Concomitant]
  6. TRAMADOL (TRAMADOL) [Concomitant]

REACTIONS (7)
  - Gastritis [None]
  - Dehydration [None]
  - Nausea [None]
  - Vomiting [None]
  - Diarrhoea [None]
  - Hallucination [None]
  - Incorrect dose administered [None]
